FAERS Safety Report 10196746 (Version 2)
Quarter: 2014Q2

REPORT INFORMATION
  Report Type: Spontaneous
  Country: US (occurrence: US)
  Receive Date: 20140527
  Receipt Date: 20140630
  Transmission Date: 20141212
  Serious: No
  Sender: FDA-Public Use
  Company Number: US-B.I. PHARMACEUTICALS,INC./RIDGEFIELD-2014-BI-21757BP

PATIENT
  Age: 47 Year
  Sex: Male
  Weight: 82 kg

DRUGS (2)
  1. ZANTAC 150 (RANITIDINE HYDROCHLORIDE) [Suspect]
     Indication: DYSPEPSIA
     Route: 048
     Dates: start: 2012
  2. ZANTAC 150 (RANITIDINE HYDROCHLORIDE) [Suspect]
     Indication: DYSPEPSIA

REACTIONS (2)
  - Dyspepsia [Recovered/Resolved]
  - Product quality issue [Unknown]
